FAERS Safety Report 7540783-5 (Version None)
Quarter: 2011Q2

REPORT INFORMATION
  Report Type: 
  Country: None (occurrence: None)
  Receive Date: 20110610
  Receipt Date: 20110531
  Transmission Date: 20111010
  Serious: Yes (Hospitalization)
  Sender: FDA-Public Use
  Company Number: DK-ABBOTT-11P-044-0729719-02

PATIENT
  Sex: Female

DRUGS (2)
  1. HUMIRA [Suspect]
     Indication: CROHN'S DISEASE
     Dosage: 160MG (BASELINE)/80 MG (WEEK 2)
     Route: 058
     Dates: start: 20080124, end: 20080320
  2. AZATHIOPRINE SODIUM [Concomitant]
     Indication: CROHN'S DISEASE
     Dates: start: 20100414

REACTIONS (1)
  - ILEAL STENOSIS [None]
